FAERS Safety Report 6506313-1 (Version None)
Quarter: 2009Q4

REPORT INFORMATION
  Report Type: 
  Country: None (occurrence: None)
  Receive Date: 20091218
  Receipt Date: 20091211
  Transmission Date: 20100525
  Serious: Yes (Other)
  Sender: FDA-Public Use
  Company Number: CA-AMGEN-QUU379781

PATIENT
  Age: 58 Year
  Sex: Male
  Weight: 90 kg

DRUGS (10)
  1. SENSIPAR [Suspect]
     Indication: DRUG USE FOR UNKNOWN INDICATION
     Route: 048
  2. ASPIRIN [Concomitant]
  3. ACETYLSALICYLIC ACID ENTERIC COATED [Concomitant]
  4. FOSRENOL [Concomitant]
  5. NPH INSULIN [Concomitant]
  6. LIPITOR [Concomitant]
  7. LOSEC [Concomitant]
  8. METOPROLOL TARTRATE [Concomitant]
  9. MULTI-VITAMINS [Concomitant]
  10. ZOPICLONE [Concomitant]

REACTIONS (2)
  - RASH [None]
  - SKIN EXFOLIATION [None]
